FAERS Safety Report 17647689 (Version 1)
Quarter: 2020Q2

REPORT INFORMATION
  Report Type: Spontaneous
  Country: ES (occurrence: ES)
  Receive Date: 20200409
  Receipt Date: 20200409
  Transmission Date: 20200713
  Serious: Yes (Other)
  Sender: FDA-Public Use
  Company Number: ES-TEVA-2020-ES-1219829

PATIENT
  Age: 38 Year
  Sex: Female

DRUGS (1)
  1. COPAXONE [Suspect]
     Active Substance: GLATIRAMER ACETATE
     Indication: MULTIPLE SCLEROSIS
     Route: 058
     Dates: start: 2019

REACTIONS (7)
  - Injection site pain [Recovering/Resolving]
  - Injection site indentation [Recovering/Resolving]
  - Anaphylactic reaction [Recovering/Resolving]
  - Rash macular [Recovering/Resolving]
  - Injection site necrosis [Recovering/Resolving]
  - Injection site ulcer [Recovering/Resolving]
  - Dyspnoea [Recovering/Resolving]

NARRATIVE: CASE EVENT DATE: 201912
